FAERS Safety Report 22183759 (Version 1)
Quarter: 2023Q2

REPORT INFORMATION
  Report Type: Spontaneous
  Country: JP (occurrence: JP)
  Receive Date: 20230406
  Receipt Date: 20230406
  Transmission Date: 20230722
  Serious: Yes (Hospitalization)
  Sender: FDA-Public Use
  Company Number: JP-Eisai-202213739_FYC_P_1

PATIENT
  Age: 45 Year
  Sex: Female

DRUGS (5)
  1. FYCOMPA [Suspect]
     Active Substance: PERAMPANEL
     Indication: Temporal lobe epilepsy
     Route: 048
  2. FYCOMPA [Suspect]
     Active Substance: PERAMPANEL
     Dosage: ACCIDENTALLY TOOK THESE DRUGS AT A DOUBLE DOSE.
     Route: 048
  3. FYCOMPA [Suspect]
     Active Substance: PERAMPANEL
     Route: 048
  4. LEVETIRACETAM [Suspect]
     Active Substance: LEVETIRACETAM
     Indication: Temporal lobe epilepsy
     Dosage: DOSE AND FREQUENCY UNKNOWN (DOUBLE DOSE)
     Route: 048
  5. LACOSAMIDE [Suspect]
     Active Substance: LACOSAMIDE
     Indication: Temporal lobe epilepsy
     Dosage: DOSE AND FREQUENCY UNKNOWN (DOUBLE DOSE)
     Route: 048

REACTIONS (4)
  - Language disorder [Unknown]
  - Electroencephalogram abnormal [Unknown]
  - Agraphia [Unknown]
  - Incorrect dose administered [Unknown]
